FAERS Safety Report 4889778-0 (Version None)
Quarter: 2006Q1

REPORT INFORMATION
  Report Type: 
  Country: None (occurrence: None)
  Receive Date: 20060123
  Receipt Date: 20060123
  Transmission Date: 20060701
  Serious: Yes (Life-Threatening, Hospitalization)
  Sender: FDA-Public Use
  Company Number: None

PATIENT
  Age: 65 Year
  Sex: Male
  Weight: 65.9 kg

DRUGS (1)
  1. LEPIRUDIN 100 MG IN D5%/W 250 MLS BERLEX [Suspect]
     Indication: PULMONARY EMBOLISM
     Dosage: INFUSION IV
     Route: 042
     Dates: start: 20060102, end: 20060117

REACTIONS (12)
  - ADRENAL HAEMORRHAGE [None]
  - ADRENOCORTICAL INSUFFICIENCY ACUTE [None]
  - ANAPHYLACTIC REACTION [None]
  - DYSGEUSIA [None]
  - FATIGUE [None]
  - HYPERCOAGULATION [None]
  - HYPOTENSION [None]
  - LETHARGY [None]
  - LOSS OF CONSCIOUSNESS [None]
  - PULMONARY EMBOLISM [None]
  - PYREXIA [None]
  - WEIGHT DECREASED [None]
